FAERS Safety Report 7135434-8 (Version None)
Quarter: 2010Q4

REPORT INFORMATION
  Report Type: 
  Country: None (occurrence: None)
  Receive Date: 20101203
  Receipt Date: 20101124
  Transmission Date: 20110411
  Serious: Yes (Hospitalization)
  Sender: FDA-Public Use
  Company Number: US-JNJFOC-20100705369

PATIENT
  Sex: Male
  Weight: 77.2 kg

DRUGS (6)
  1. INFLIXIMAB, RECOMBINANT [Suspect]
     Indication: CROHN'S DISEASE
     Route: 042
  2. MESALAMINE [Concomitant]
     Route: 048
  3. CIMZIA [Concomitant]
  4. CIMZIA [Concomitant]
  5. PREDNISONE [Concomitant]
  6. ANTIBIOTICS [Concomitant]
     Indication: INFLAMMATORY BOWEL DISEASE

REACTIONS (6)
  - ACANTHOSIS NIGRICANS [None]
  - CROHN'S DISEASE [None]
  - HYPERGLYCAEMIA [None]
  - HYPERTENSION [None]
  - LEFT VENTRICULAR HYPERTROPHY [None]
  - METABOLIC SYNDROME [None]
